FAERS Safety Report 17980270 (Version 2)
Quarter: 2020Q3

REPORT INFORMATION
  Report Type: Spontaneous
  Country: DE (occurrence: DE)
  Receive Date: 20200703
  Receipt Date: 20200707
  Transmission Date: 20201103
  Serious: Yes (Other)
  Sender: FDA-Public Use
  Company Number: NVSC2020DE125881

PATIENT
  Age: 11 Year
  Sex: Female

DRUGS (6)
  1. VARILRIX [Concomitant]
     Active Substance: VARICELLA-ZOSTER VIRUS STRAIN OKA/MERCK LIVE ANTIGEN
     Indication: VARICELLA IMMUNISATION
     Dosage: UNK
     Route: 030
     Dates: start: 201602
  2. IMATINIB. [Suspect]
     Active Substance: IMATINIB MESYLATE
     Indication: CHRONIC MYELOID LEUKAEMIA
     Dosage: UNK
     Route: 065
     Dates: end: 2017
  3. PRIORIX [Concomitant]
     Active Substance: MEASLES-MUMPS-RUBELLA VIRUS VACCINE
     Dosage: UNK
     Route: 065
     Dates: start: 201507
  4. VARILRIX [Concomitant]
     Active Substance: VARICELLA-ZOSTER VIRUS STRAIN OKA/MERCK LIVE ANTIGEN
     Indication: VARICELLA ZOSTER PNEUMONIA
  5. IMATINIB. [Suspect]
     Active Substance: IMATINIB MESYLATE
     Dosage: UNK
     Route: 065
  6. PRIORIX [Concomitant]
     Active Substance: MEASLES-MUMPS-RUBELLA VIRUS VACCINE
     Indication: ANTIVIRAL PROPHYLAXIS
     Dosage: UNK
     Route: 030
     Dates: start: 201207

REACTIONS (6)
  - Chronic myeloid leukaemia recurrent [Unknown]
  - Drug ineffective [Unknown]
  - B-lymphocyte count decreased [Unknown]
  - Cytogenetic abnormality [Recovered/Resolved]
  - Vaccination failure [Recovered/Resolved]
  - Treatment failure [Recovered/Resolved]

NARRATIVE: CASE EVENT DATE: 201708
